FAERS Safety Report 8202878 (Version 2)
Quarter: 2012Q4

REPORT INFORMATION
  Report Type: 
  Country: US (occurrence: US)
  Receive Date: 20111027
  Receipt Date: 20120920
  Transmission Date: 20130627
  Serious: Yes (Other)
  Sender: FDA-Public Use
  Company Number: US-ASTRAZENECA-2011SE62899

PATIENT
  Age: 63 Year
  Sex: Female
  Weight: 99.8 kg

DRUGS (5)
  1. SEROQUEL XR [Suspect]
     Indication: BIPOLAR DISORDER
     Route: 048
  2. SELEXA [Concomitant]
     Indication: BIPOLAR DISORDER
  3. ATAVAND [Concomitant]
     Indication: BIPOLAR DISORDER
     Dosage: 1 MG, Q3D
  4. AMBIEN [Concomitant]
     Indication: SLEEP DISORDER
  5. CANCER MEDICATION [Concomitant]

REACTIONS (7)
  - Cancer in remission [Unknown]
  - Breast cancer [Unknown]
  - Diabetes mellitus [Unknown]
  - Hypertension [Unknown]
  - Arthritis [Unknown]
  - Abasia [Unknown]
  - Blood cholesterol increased [Unknown]
